FAERS Safety Report 7742361-1 (Version None)
Quarter: 2011Q3

REPORT INFORMATION
  Report Type: 
  Country: None (occurrence: None)
  Receive Date: 20110912
  Receipt Date: 20110426
  Transmission Date: 20111222
  Serious: Yes (Other)
  Sender: FDA-Public Use
  Company Number: PHHY2011US35565

PATIENT
  Sex: Female

DRUGS (1)
  1. GENTEAL [Suspect]
     Dosage: UNK

REACTIONS (4)
  - HYPERSENSITIVITY [None]
  - RASH [None]
  - URTICARIA [None]
  - PRURITUS GENERALISED [None]
